FAERS Safety Report 10515592 (Version 1)
Quarter: 2014Q4

REPORT INFORMATION
  Report Type: Spontaneous
  Country: US (occurrence: US)
  Receive Date: 20141014
  Receipt Date: 20141014
  Transmission Date: 20150528
  Serious: No
  Sender: FDA-Public Use
  Company Number: US-BAYER-2014-151630

PATIENT
  Age: 44 Year
  Sex: Male
  Weight: 154 kg

DRUGS (2)
  1. ALEVE [Suspect]
     Active Substance: NAPROXEN SODIUM
     Indication: INFLAMMATION
     Dosage: 2 UNK, UNK
     Route: 048
     Dates: start: 2014
  2. TYLENOL [Suspect]
     Active Substance: ACETAMINOPHEN

REACTIONS (2)
  - Incorrect dose administered [Unknown]
  - Intentional product misuse [Unknown]

NARRATIVE: CASE EVENT DATE: 2014
